FAERS Safety Report 8111887-3 (Version None)
Quarter: 2012Q1

REPORT INFORMATION
  Report Type: 
  Country: None (occurrence: None)
  Receive Date: 20120203
  Receipt Date: 20120127
  Transmission Date: 20120608
  Serious: Yes (Other)
  Sender: FDA-Public Use
  Company Number: US-JNJFOC-20120113060

PATIENT
  Sex: Female
  Weight: 54.43 kg

DRUGS (5)
  1. FENTANYL-100 [Suspect]
     Indication: FIBROMYALGIA
     Route: 062
     Dates: start: 20080101
  2. FENTANYL-100 [Suspect]
     Dosage: 100 MCG/HOUR PLUS 75 MCG/HOUR
     Route: 062
     Dates: start: 20040101, end: 20080101
  3. HYDROCODONE BITARTRATE [Concomitant]
     Indication: BREAKTHROUGH PAIN
     Dosage: AS NEEDED
     Route: 048
  4. FENTANYL-100 [Suspect]
     Dosage: 50 MCG/HOUR PLUS 12.5 MCG/HOUR
     Route: 062
     Dates: end: 20120112
  5. CLONAZEPAM [Concomitant]
     Indication: CONVULSION
     Route: 048
     Dates: start: 20090101

REACTIONS (18)
  - VISION BLURRED [None]
  - AGITATION [None]
  - FAECALOMA [None]
  - WITHDRAWAL SYNDROME [None]
  - OCULAR HYPERAEMIA [None]
  - DRUG DOSE OMISSION [None]
  - VOMITING [None]
  - EATING DISORDER [None]
  - DISORIENTATION [None]
  - FATIGUE [None]
  - THERAPY CESSATION [None]
  - SLEEP APNOEA SYNDROME [None]
  - DYSURIA [None]
  - INSOMNIA [None]
  - DIZZINESS [None]
  - CONVULSION [None]
  - GAIT DISTURBANCE [None]
  - MUSCLE SPASMS [None]
